FAERS Safety Report 23307477 (Version 1)
Quarter: 2023Q4

REPORT INFORMATION
  Report Type: Spontaneous
  Country: US (occurrence: US)
  Receive Date: 20231218
  Receipt Date: 20231218
  Transmission Date: 20240109
  Serious: No
  Sender: FDA-Public Use
  Company Number: US-ABBVIE-2304608US

PATIENT
  Sex: Male

DRUGS (2)
  1. BOTOX [Suspect]
     Active Substance: ONABOTULINUMTOXINA
     Indication: Skin wrinkling
     Dosage: TIME INTERVAL: AS NECESSARY: DOSE DESC: UNK, SINGLE
  2. DYSPORT [Concomitant]
     Active Substance: ABOBOTULINUMTOXINA
     Indication: Product used for unknown indication

REACTIONS (2)
  - COVID-19 [Unknown]
  - Drug ineffective [Unknown]
